FAERS Safety Report 8396037-0 (Version None)
Quarter: 2012Q2

REPORT INFORMATION
  Report Type: 
  Country: None (occurrence: None)
  Receive Date: 20120530
  Receipt Date: 20120524
  Transmission Date: 20120825
  Serious: Yes (Hospitalization)
  Sender: FDA-Public Use
  Company Number: US-PFIZER INC-2012126349

PATIENT
  Age: 62 Year
  Sex: Female
  Weight: 62.132 kg

DRUGS (2)
  1. GEMCITABINE [Concomitant]
     Indication: LUNG NEOPLASM MALIGNANT
     Dosage: 1500 MG ON DAY 1 AND THEN AT 1500 MG IN EVERY 28 DAYS
     Dates: start: 20120426
  2. CARBOPLATIN [Suspect]
     Indication: LUNG NEOPLASM MALIGNANT
     Dosage: 636 MG, WEEKLY
     Dates: start: 20120426, end: 20120524

REACTIONS (3)
  - HYPERHIDROSIS [None]
  - DYSPNOEA [None]
  - PALPITATIONS [None]
